FAERS Safety Report 4935336-9 (Version None)
Quarter: 2006Q1

REPORT INFORMATION
  Report Type: 
  Country: None (occurrence: None)
  Receive Date: 20060307
  Receipt Date: 20060224
  Transmission Date: 20060701
  Serious: Yes (Life-Threatening, Other)
  Sender: FDA-Public Use
  Company Number: FR-BRISTOL-MYERS SQUIBB COMPANY-13303789

PATIENT
  Age: 34 Year
  Sex: Male

DRUGS (7)
  1. ENDOXAN [Suspect]
     Indication: CUTANEOUS LUPUS ERYTHEMATOSUS
     Route: 048
     Dates: start: 19910412, end: 19920517
  2. PREVISCAN [Concomitant]
     Route: 048
  3. TAREG [Concomitant]
     Indication: ESSENTIAL HYPERTENSION
     Route: 048
  4. EPITOMAX [Concomitant]
     Indication: EPILEPSY
     Route: 048
  5. MEDROL [Concomitant]
     Indication: SYSTEMIC LUPUS ERYTHEMATOSUS
     Route: 048
  6. PLAQUENIL [Concomitant]
     Route: 048
  7. SOLUPRED [Concomitant]
     Dates: start: 19910101

REACTIONS (3)
  - LEIOMYOSARCOMA [None]
  - TOXOPLASMOSIS [None]
  - WHITE BLOOD CELL COUNT DECREASED [None]
